FAERS Safety Report 16298708 (Version 2)
Quarter: 2019Q2

REPORT INFORMATION
  Report Type: Spontaneous
  Country: US (occurrence: US)
  Receive Date: 20190510
  Receipt Date: 20190515
  Transmission Date: 20190711
  Serious: Yes (Death, Hospitalization, Other)
  Sender: FDA-Public Use
  Company Number: US-UNITED THERAPEUTICS-UNT-2019-008326

PATIENT
  Age: 68 Year
  Sex: Female
  Weight: 47.17 kg

DRUGS (3)
  1. OPSUMIT [Concomitant]
     Active Substance: MACITENTAN
     Indication: PRODUCT USED FOR UNKNOWN INDICATION
     Route: 065
  2. TYVASO [Suspect]
     Active Substance: TREPROSTINIL
     Indication: PULMONARY ARTERIAL HYPERTENSION
     Dosage: 60-120 MICROGRAMS, QID
     Dates: start: 20190205
  3. TYVASO [Suspect]
     Active Substance: TREPROSTINIL
     Dosage: 18-54 ?G, QID

REACTIONS (5)
  - Off label use [Unknown]
  - Haemoglobin decreased [Unknown]
  - Haematochezia [Unknown]
  - Haematemesis [Unknown]
  - Internal haemorrhage [Fatal]

NARRATIVE: CASE EVENT DATE: 20190506
